FAERS Safety Report 4565578-6 (Version None)
Quarter: 2005Q1

REPORT INFORMATION
  Report Type: 
  Country: None (occurrence: None)
  Receive Date: 20050125
  Receipt Date: 20050125
  Transmission Date: 20050727
  Serious: Yes (Hospitalization)
  Sender: FDA-Public Use
  Company Number: None

PATIENT
  Age: 81 Year
  Sex: Male
  Weight: 67.1 kg

DRUGS (16)
  1. RISPERIDONE [Suspect]
     Indication: DEMENTIA
     Dosage: 1.25MG , 0.25MG B, ORAL
     Route: 048
     Dates: start: 20040902, end: 20041105
  2. IPATROPIUM BROMIDE [Concomitant]
  3. ALBUTEROL [Concomitant]
  4. CITALOPRAM [Concomitant]
  5. RISPERIDONE [Concomitant]
  6. DONEPEZIL HCL [Concomitant]
  7. ACETAMINOPHEN [Concomitant]
  8. GABAPENTIN [Concomitant]
  9. TRAMADOL HCL [Concomitant]
  10. OMEPRAZOLE [Concomitant]
  11. THIAMINE HCL [Concomitant]
  12. METOPROLOL [Concomitant]
  13. IRON (POLYSACCHARIDE COMPLEX) [Concomitant]
  14. FUROSEMIDE [Concomitant]
  15. CLOPIDOGREL BISULFATE [Concomitant]
  16. BISACODYL [Concomitant]

REACTIONS (1)
  - DYSKINESIA [None]
